FAERS Safety Report 5143692-4 (Version None)
Quarter: 2006Q4

REPORT INFORMATION
  Report Type: 
  Country: None (occurrence: None)
  Receive Date: 20061103
  Receipt Date: 20061026
  Transmission Date: 20070319
  Serious: Yes (Other)
  Sender: FDA-Public Use
  Company Number: US-ABBOTT-06P-163-0348763-00

PATIENT

DRUGS (1)
  1. HUMIRA [Suspect]
     Indication: DRUG USE FOR UNKNOWN INDICATION

REACTIONS (1)
  - RETINAL DETACHMENT [None]
